FAERS Safety Report 23618511 (Version 1)
Quarter: 2024Q1

REPORT INFORMATION
  Report Type: Spontaneous
  Country: CH (occurrence: None)
  Receive Date: 20240311
  Receipt Date: 20240311
  Transmission Date: 20240409
  Serious: Yes (Other)
  Sender: FDA-Public Use
  Company Number: 2024A058398

PATIENT
  Sex: Male

DRUGS (4)
  1. OLAPARIB [Suspect]
     Active Substance: OLAPARIB
     Indication: Pancreatic carcinoma
     Dosage: UNK UNKNOWN
     Route: 048
  2. FLUOROURACIL [Suspect]
     Active Substance: FLUOROURACIL
  3. GEMCITABINE [Suspect]
     Active Substance: GEMCITABINE
  4. PACLITAXEL [Suspect]
     Active Substance: PACLITAXEL

REACTIONS (1)
  - Malignant neoplasm progression [Unknown]
